FAERS Safety Report 26209391 (Version 1)
Quarter: 2025Q4

REPORT INFORMATION
  Report Type: Spontaneous
  Country: EU (occurrence: EU)
  Receive Date: 20251229
  Receipt Date: 20251229
  Transmission Date: 20260118
  Serious: Yes (Other)
  Sender: PFIZER
  Company Number: EU-PFIZER INC-PV202500049755

PATIENT
  Age: 58 Year
  Sex: Female

DRUGS (8)
  1. ELREXFIO [Suspect]
     Active Substance: ELRANATAMAB-BCMM
     Dosage: 12 MG
     Dates: start: 20250401
  2. ELREXFIO [Suspect]
     Active Substance: ELRANATAMAB-BCMM
     Dosage: 32 MG
     Dates: start: 20250404
  3. ELREXFIO [Suspect]
     Active Substance: ELRANATAMAB-BCMM
     Dosage: 76 MG, WEEKLY
     Route: 058
     Dates: start: 20250416
  4. ELREXFIO [Suspect]
     Active Substance: ELRANATAMAB-BCMM
     Dosage: 76 MG, WEEKLY
     Route: 058
     Dates: start: 20250423
  5. ELREXFIO [Suspect]
     Active Substance: ELRANATAMAB-BCMM
     Dosage: 76 MG, WEEKLY
     Route: 058
     Dates: start: 20250522
  6. ELREXFIO [Suspect]
     Active Substance: ELRANATAMAB-BCMM
     Dosage: 76 MG, CYCLIC, EVERY 2 WEEKS
     Route: 058
     Dates: start: 20250618
  7. ELREXFIO [Suspect]
     Active Substance: ELRANATAMAB-BCMM
     Dosage: 76 MG, CYCLIC, EVERY 15 DAYS
     Route: 058
     Dates: start: 20250917
  8. ELREXFIO [Suspect]
     Active Substance: ELRANATAMAB-BCMM
     Dosage: 76 MG, CYCLIC, EVERY 14 DAYS
     Dates: start: 20251217

REACTIONS (3)
  - Agranulocytosis [Unknown]
  - Cytomegalovirus infection [Unknown]
  - Herpes zoster [Unknown]
